FAERS Safety Report 23468050 (Version 4)
Quarter: 2024Q1

REPORT INFORMATION
  Report Type: Report from Study
  Country: US (occurrence: US)
  Receive Date: 20240201
  Receipt Date: 20240314
  Transmission Date: 20240410
  Serious: Yes (Hospitalization)
  Sender: FDA-Public Use
  Company Number: US-ABBVIE-5608717

PATIENT
  Sex: Male

DRUGS (2)
  1. RINVOQ [Suspect]
     Active Substance: UPADACITINIB
     Indication: Dermatitis atopic
     Route: 048
     Dates: start: 20231101
  2. RINVOQ [Suspect]
     Active Substance: UPADACITINIB
     Indication: Dermatitis atopic
     Dosage: LAST ADMIN DATE: 2023
     Route: 048
     Dates: start: 20230922

REACTIONS (4)
  - Respiratory syncytial virus infection [Unknown]
  - Vomiting [Unknown]
  - Nausea [Recovering/Resolving]
  - Increased viscosity of upper respiratory secretion [Recovering/Resolving]

NARRATIVE: CASE EVENT DATE: 20230101
